FAERS Safety Report 26186222 (Version 1)
Quarter: 2025Q4

REPORT INFORMATION
  Report Type: Spontaneous
  Country: US (occurrence: US)
  Receive Date: 20251222
  Receipt Date: 20251222
  Transmission Date: 20260118
  Serious: No
  Sender: ROCHE
  Company Number: US-ROCHE-10000463008

PATIENT
  Age: 58 Year
  Sex: Male
  Weight: 96.16 kg

DRUGS (1)
  1. XOLAIR [Suspect]
     Active Substance: OMALIZUMAB
     Indication: Asthma
     Dosage: 300MG INJECTIONS TWICE A MONTH
     Route: 058
     Dates: start: 202505

REACTIONS (3)
  - Off label use [Unknown]
  - No adverse event [Unknown]
  - Product storage error [Unknown]

NARRATIVE: CASE EVENT DATE: 20250501
